FAERS Safety Report 8615268-5 (Version None)
Quarter: 2012Q3

REPORT INFORMATION
  Report Type: 
  Country: None (occurrence: None)
  Receive Date: 20120823
  Receipt Date: 20120814
  Transmission Date: 20120928
  Serious: Yes (Life-Threatening, Hospitalization, Disabling, Other)
  Sender: FDA-Public Use
  Company Number: US-FRI-1000037882

PATIENT
  Sex: Female
  Weight: 60.8 kg

DRUGS (1)
  1. SAVELLA [Suspect]
     Indication: FIBROMYALGIA
     Dosage: 100 MG
     Dates: start: 20111010, end: 20120415

REACTIONS (14)
  - INSOMNIA [None]
  - UNEVALUABLE EVENT [None]
  - AGITATION [None]
  - IMPULSIVE BEHAVIOUR [None]
  - IRRITABILITY [None]
  - HOSTILITY [None]
  - DEPRESSION [None]
  - PANIC ATTACK [None]
  - AGGRESSION [None]
  - RESTLESSNESS [None]
  - HYPERTENSION [None]
  - HEART RATE IRREGULAR [None]
  - ANXIETY [None]
  - MEMORY IMPAIRMENT [None]
